FAERS Safety Report 20007992 (Version 1)
Quarter: 2021Q4

REPORT INFORMATION
  Report Type: Spontaneous
  Country: SA (occurrence: SA)
  Receive Date: 20211028
  Receipt Date: 20211028
  Transmission Date: 20220303
  Serious: Yes (Death, Other)
  Sender: FDA-Public Use
  Company Number: SA-MEITHEAL-2021MPLIT00059

PATIENT
  Age: 55 Day
  Sex: Male
  Weight: .75 kg

DRUGS (3)
  1. DAPTOMYCIN [Suspect]
     Active Substance: DAPTOMYCIN
     Indication: Skin bacterial infection
     Route: 042
  2. LEVOFLOXACIN [Concomitant]
     Active Substance: LEVOFLOXACIN
     Indication: Stenotrophomonas infection
  3. LINEZOLID [Concomitant]
     Active Substance: LINEZOLID

REACTIONS (2)
  - Hepatotoxicity [Fatal]
  - Product use issue [Unknown]
